FAERS Safety Report 9729137 (Version 3)
Quarter: 2014Q1

REPORT INFORMATION
  Report Type: Spontaneous
  Country: US (occurrence: US)
  Receive Date: 20131204
  Receipt Date: 20140110
  Transmission Date: 20141002
  Serious: Yes (Other)
  Sender: FDA-Public Use
  Company Number: US-GILEAD-2013-0088882

PATIENT
  Age: 39 Year
  Sex: Male

DRUGS (5)
  1. VIREAD [Suspect]
     Indication: HIV INFECTION
     Dosage: 600 MG, BID
     Route: 048
     Dates: start: 2003, end: 20131105
  2. VIREAD [Suspect]
     Dosage: UNK
     Dates: start: 20131118
  3. TRIZIVIR [Suspect]
     Indication: HIV INFECTION
     Dosage: 2 DF, BID
     Route: 048
     Dates: start: 200211, end: 20131105
  4. TRIZIVIR [Suspect]
     Dosage: UNK
     Dates: start: 20131118
  5. LISINOPRIL [Concomitant]

REACTIONS (7)
  - Coeliac disease [Recovered/Resolved]
  - Defaecation urgency [Recovered/Resolved]
  - Functional gastrointestinal disorder [Recovered/Resolved]
  - Abnormal faeces [Recovered/Resolved]
  - Headache [Recovered/Resolved]
  - Product quality issue [Recovered/Resolved]
  - Diarrhoea [Recovered/Resolved]
